FAERS Safety Report 5646505-7 (Version None)
Quarter: 2008Q1

REPORT INFORMATION
  Report Type: 
  Country: None (occurrence: None)
  Receive Date: 20080303
  Receipt Date: 20080221
  Transmission Date: 20080703
  Serious: Yes (Congenital Anomaly)
  Sender: FDA-Public Use
  Company Number: BR-AVENTIS-200811548GDDC

PATIENT
  Age: 0 Year
  Sex: Female
  Weight: 2.85 kg

DRUGS (4)
  1. LANTUS [Suspect]
     Route: 015
     Dates: start: 20070721, end: 20071130
  2. OPTIPEN (INSULIN PUMP) [Suspect]
     Dates: start: 20070721, end: 20071130
  3. UNKNOWN DRUG [Concomitant]
  4. UNKNOWN DRUG [Concomitant]

REACTIONS (3)
  - DOUBLE OUTLET RIGHT VENTRICLE [None]
  - DRUG EXPOSURE DURING PREGNANCY [None]
  - VENTRICULAR SEPTAL DEFECT [None]
